FAERS Safety Report 5565552-7 (Version None)
Quarter: 2007Q4

REPORT INFORMATION
  Report Type: 
  Country: None (occurrence: None)
  Receive Date: 20071218
  Receipt Date: 20050905
  Transmission Date: 20080405
  Serious: Yes (Death)
  Sender: FDA-Public Use
  Company Number: DE-ROCHE-418334

PATIENT
  Age: 51 Year
  Sex: Male
  Weight: 75 kg

DRUGS (5)
  1. VALCYTE [Suspect]
     Route: 048
     Dates: start: 20040928, end: 20041007
  2. VALCYTE [Suspect]
     Route: 048
     Dates: start: 20041008, end: 20041018
  3. VALCYTE [Suspect]
     Route: 048
     Dates: start: 20041019, end: 20041026
  4. VALCYTE [Suspect]
     Route: 048
     Dates: start: 20041027, end: 20041221
  5. COLONY STIMULATING FACTORS [Concomitant]
     Dates: end: 20041007

REACTIONS (4)
  - BLOOD CREATININE INCREASED [None]
  - DEATH [None]
  - LEUKOPENIA [None]
  - THROMBOCYTOPENIA [None]
